FAERS Safety Report 23203434 (Version 2)
Quarter: 2023Q4

REPORT INFORMATION
  Report Type: Report from Study
  Country: US (occurrence: US)
  Receive Date: 20231120
  Receipt Date: 20231220
  Transmission Date: 20240109
  Serious: Yes (Other)
  Sender: FDA-Public Use
  Company Number: US-ACADIA PHARMACEUTICALS INC.-ACA-2023-TRF-004868

PATIENT
  Age: 10 Year
  Sex: Female

DRUGS (19)
  1. DAYBUE [Suspect]
     Active Substance: TROFINETIDE
     Indication: Rett syndrome
     Dosage: 30 MILLILITER, BID VIA G-TUBE
     Dates: start: 20231015
  2. DAYBUE [Suspect]
     Active Substance: TROFINETIDE
     Dosage: 30 MILLILITER, BID VIA G-TUBE
     Dates: start: 20231016
  3. NEURONTIN [Concomitant]
     Active Substance: GABAPENTIN
     Dosage: 4 MILLILITER, TID (250MG/5ML)
  4. KLONOPIN [Concomitant]
     Active Substance: CLONAZEPAM
     Dosage: 0.1 MG/ML LIQUID, TAKE 5 ML BY G TUBE EVERY NIGHT AT BEDTIME
  5. MILK OF MAGNESIA [Concomitant]
     Active Substance: MAGNESIUM HYDROXIDE
     Dosage: 400 MG/5 ML, TAKE 15 ML BY G TUBE 2 TIMES A DAY
  6. DEPAKENE [Concomitant]
     Active Substance: VALPROIC ACID
     Dosage: 250 MG/5ML, TAKE 2.5 ML BY MOUTH IN THE MORNING, 2.5 ML BY MOUTH IN THE EVENING, 10 ML BY MOUTH AT B
     Route: 048
  7. CULTURELLE KIDS PROBIOTICS + FIBER [Concomitant]
     Dosage: 3.5 GRAM POWDER IN PACKET, TAKE ONE PACKET BY MOUTH ONCE A DAY
  8. pediatric peptide formula [Concomitant]
     Dosage: 0.05 G-1.5 KCAL/ML LIQUID, 3 TIMES A DAY
  9. KONVOMEP [Concomitant]
     Active Substance: OMEPRAZOLE\SODIUM BICARBONATE
     Dosage: 1-84 MG/ML SUSPENSION, TAKE 7.5 ML BY G TUNE 2 TIMES A DAY
  10. ERYTHROMYCIN ETHYLSUCCINATE [Concomitant]
     Active Substance: ERYTHROMYCIN ETHYLSUCCINATE
     Dosage: 200 MG/5ML, TAKE 1.75 ML BY G TUBE 4 TIMES A DAY
  11. DUOCAL [Concomitant]
     Dosage: TAKE 4 SCOOPS BY MOUTH2 TIMES A DAY, ADD SCOOPS TO MEALS
  12. DIASTAT [Concomitant]
     Active Substance: DIAZEPAM
     Indication: Seizure
     Dosage: 5-7.5-10 MG, APPLY 10 MG RECTALLY ONCE IF NEEDED, FOR UP TO 1 DOSE, PRN INTO 1 SEIZURE LONGER THAN 5
     Route: 054
  13. ZANAFLEX [Concomitant]
     Active Substance: TIZANIDINE HYDROCHLORIDE
     Dosage: 2 MILLIGRAM, TAKE 1 TABLET BY G TUBE 4 TIMES A DAY
  14. VIMPAT [Concomitant]
     Active Substance: LACOSAMIDE
     Dosage: 10 MG/ML, TAKE 5 ML BY G TUBE 2 TIMES A DAY
  15. RISPERDAL [Concomitant]
     Active Substance: RISPERIDONE
     Dosage: 1 MG/ML SOLUTION, TAKE 4 ML BY G TUBE 2 TIMES A DAY
  16. MYSOLINE [Concomitant]
     Active Substance: PRIMIDONE
     Dosage: 50 MILLIGRAM, TAKE 1 TABLET BY G TUBE EVERY NIGHT AT BEDTIME
  17. GLYCOPYRROLATE [Concomitant]
     Active Substance: GLYCOPYRROLATE
     Indication: Secretion discharge
     Dosage: 1 MG/5 ML, TAKE 1.5 ML BY G TUBE 2 TIMES A DAY AS NEEDED
  18. NARCAN [Concomitant]
     Active Substance: NALOXONE HYDROCHLORIDE
     Indication: Toxicity to various agents
     Dosage: 4 MG/ACTUATION, ADMINISTER 1 SPRAY INTO ONE NOSTRIL AS NEEDED, MAY REPEAT AFTER 2 TO 3 MINUTE IF NO
     Route: 045
  19. MUCOMYST [Concomitant]
     Active Substance: ACETYLCYSTEINE
     Indication: Secretion discharge
     Dosage: 50 MG/ML, 5% SOLUTION, TAKE 5 ML BY G TUBE 2 TIMES A DAY AS NEEDED

REACTIONS (9)
  - Intentional self-injury [Not Recovered/Not Resolved]
  - Somnolence [Not Recovered/Not Resolved]
  - Emotional distress [Not Recovered/Not Resolved]
  - Crying [Not Recovered/Not Resolved]
  - Aggression [Recovered/Resolved]
  - Anxiety [Not Recovered/Not Resolved]
  - Diarrhoea [Not Recovered/Not Resolved]
  - Diarrhoea [Not Recovered/Not Resolved]
  - Diarrhoea [Not Recovered/Not Resolved]

NARRATIVE: CASE EVENT DATE: 20231001
